FAERS Safety Report 20833531 (Version 1)
Quarter: 2022Q2

REPORT INFORMATION
  Report Type: Spontaneous
  Country: RU (occurrence: RU)
  Receive Date: 20220516
  Receipt Date: 20220516
  Transmission Date: 20220721
  Serious: Yes (Death, Other)
  Sender: FDA-Public Use
  Company Number: RU-SA-2022SA173622

PATIENT
  Age: 48 Year
  Sex: Male
  Weight: 55 kg

DRUGS (1)
  1. FABRAZYME [Suspect]
     Active Substance: AGALSIDASE BETA
     Indication: Fabry^s disease
     Dosage: 1 MG/KG, QOW
     Route: 042
     Dates: start: 20220401, end: 20220429

REACTIONS (1)
  - Cerebral haemorrhage [Fatal]
